FAERS Safety Report 6155601-X (Version None)
Quarter: 2009Q2

REPORT INFORMATION
  Report Type: 
  Country: None (occurrence: None)
  Receive Date: 20090410
  Receipt Date: 20090410
  Transmission Date: 20091009
  Serious: Yes (Hospitalization)
  Sender: FDA-Public Use
  Company Number: None

PATIENT
  Age: 45 Year
  Sex: Female
  Weight: 56.6996 kg

DRUGS (2)
  1. XYREM [Suspect]
     Indication: HYPERSOMNIA
     Dosage: DO NOT REMEMBER 1-2 PO
     Route: 048
     Dates: start: 20071214, end: 20071228
  2. XYREM [Suspect]
     Indication: NARCOLEPSY
     Dosage: DO NOT REMEMBER 1-2 PO
     Route: 048
     Dates: start: 20071214, end: 20071228

REACTIONS (2)
  - HALLUCINATIONS, MIXED [None]
  - MANIA [None]
